FAERS Safety Report 14170403 (Version 2)
Quarter: 2018Q3

REPORT INFORMATION
  Report Type: Spontaneous
  Country: DE (occurrence: DE)
  Receive Date: 20171108
  Receipt Date: 20180711
  Transmission Date: 20181010
  Serious: Yes (Other)
  Sender: FDA-Public Use
  Company Number: DE-BRISTOL-MYERS SQUIBB COMPANY-BMS-2017-092086

PATIENT
  Sex: Male
  Weight: 77 kg

DRUGS (1)
  1. COUMADIN [Suspect]
     Active Substance: WARFARIN SODIUM
     Indication: CEREBROVASCULAR ACCIDENT
     Dosage: ACCORDING TO INR, 1 TABLET
     Route: 065
     Dates: start: 2002

REACTIONS (3)
  - Bladder cancer [Unknown]
  - Skin cancer [Unknown]
  - Tooth disorder [Unknown]
